FAERS Safety Report 10917655 (Version 1)
Quarter: 2015Q1

REPORT INFORMATION
  Report Type: Spontaneous
  Country: US (occurrence: None)
  Receive Date: 20150312
  Receipt Date: 20150312
  Transmission Date: 20150721
  Serious: No
  Sender: FDA-Public Use
  Company Number: None

PATIENT
  Age: 81 Year
  Sex: Male
  Weight: 165 kg

DRUGS (6)
  1. LORATADINE. [Concomitant]
     Active Substance: LORATADINE
  2. GAS-X [Concomitant]
     Active Substance: DIMETHICONE
  3. PERCOGESIC [Concomitant]
     Active Substance: ACETAMINOPHEN\PHENYLTOLOXAMINE CITRATE
  4. LEVOFLOXACIN 500 MG (GENERIC FOR LEVAQUIN) [Suspect]
     Active Substance: LEVOFLOXACIN
     Indication: CYSTITIS
     Dosage: 1 PILL
     Route: 048
     Dates: start: 20150123, end: 20150126
  5. PROTONIX [Concomitant]
     Active Substance: PANTOPRAZOLE SODIUM
  6. STAND BACK [Concomitant]

REACTIONS (8)
  - Muscular weakness [None]
  - Dizziness [None]
  - Pruritus [None]
  - Tendon pain [None]
  - Pruritus generalised [None]
  - Arthralgia [None]
  - Balance disorder [None]
  - Nervous system disorder [None]

NARRATIVE: CASE EVENT DATE: 20150126
